FAERS Safety Report 18444839 (Version 2)
Quarter: 2020Q4

REPORT INFORMATION
  Report Type: Spontaneous
  Country: GB (occurrence: GB)
  Receive Date: 20201030
  Receipt Date: 20201215
  Transmission Date: 20210114
  Serious: Yes (Other)
  Sender: FDA-Public Use
  Company Number: GB-AMGEN-GBRSP2020175038

PATIENT
  Age: 70 Year
  Sex: Female

DRUGS (1)
  1. ENBREL [Suspect]
     Active Substance: ETANERCEPT
     Indication: RHEUMATOID ARTHRITIS
     Dosage: 50 MG, WEEKLY
     Route: 065

REACTIONS (8)
  - Wrist fracture [Unknown]
  - Ligament sprain [Unknown]
  - Fall [Unknown]
  - Hand fracture [Unknown]
  - Spinal fracture [Unknown]
  - Facial bones fracture [Unknown]
  - Lower limb fracture [Unknown]
  - Localised infection [Recovered/Resolved]
